FAERS Safety Report 9254651 (Version 1)
Quarter: 2013Q2

REPORT INFORMATION
  Report Type: Spontaneous
  Country: GB (occurrence: None)
  Receive Date: 20130419
  Receipt Date: 20130419
  Transmission Date: 20140414
  Serious: Yes (Hospitalization)
  Sender: FDA-Public Use
  Company Number: B0884589A

PATIENT
  Age: 62 Year
  Sex: Female

DRUGS (2)
  1. PAZOPANIB [Suspect]
     Indication: METASTATIC RENAL CELL CARCINOMA
  2. SUNITINIB [Concomitant]

REACTIONS (6)
  - Posterior reversible encephalopathy syndrome [None]
  - Grand mal convulsion [None]
  - Paresis [None]
  - Blood pressure systolic increased [None]
  - Cerebrovascular accident [None]
  - Amnesia [None]
